FAERS Safety Report 12433726 (Version 1)
Quarter: 2016Q2

REPORT INFORMATION
  Report Type: Report from Study
  Country: DE (occurrence: DE)
  Receive Date: 20160603
  Receipt Date: 20160603
  Transmission Date: 20160815
  Serious: Yes (Hospitalization, Other)
  Sender: FDA-Public Use
  Company Number: DE-UCBSA-2016012780

PATIENT
  Age: 34 Year
  Sex: Male

DRUGS (8)
  1. ERGENYL CHRONO [Concomitant]
     Active Substance: VALPROIC ACID
     Indication: EPILEPSY
     Dosage: STRENGTH : 500, 500 MG AND 1000 MG, 2X/DAY (BID)
     Route: 048
     Dates: start: 20130321
  2. RIVOTRIL [Concomitant]
     Active Substance: CLONAZEPAM
     Indication: EPILEPSY
     Dosage: STRENGTH: 0.5
     Route: 048
     Dates: start: 20140424
  3. VALPROATE [Concomitant]
     Active Substance: VALPROIC ACID
     Indication: PRODUCT USED FOR UNKNOWN INDICATION
     Dosage: UNK
  4. LAMOTRIGINE. [Concomitant]
     Active Substance: LAMOTRIGINE
     Indication: PRODUCT USED FOR UNKNOWN INDICATION
     Dosage: UNK
  5. LAMOTRIGIN DESITIN [Concomitant]
     Indication: EPILEPSY
     Dosage: 75 MG AND 100 MG, 2X/DAY (BID)
     Route: 048
     Dates: start: 20141027
  6. BRIVARACETAM [Suspect]
     Active Substance: BRIVARACETAM
     Dosage: 150 MG, 2X/DAY (BID)
     Route: 048
     Dates: start: 20160428
  7. CLONAZEPAM. [Concomitant]
     Active Substance: CLONAZEPAM
     Indication: PRODUCT USED FOR UNKNOWN INDICATION
     Dosage: UNK
  8. BRIVARACETAM [Suspect]
     Active Substance: BRIVARACETAM
     Indication: EPILEPSY
     Dosage: 100 MG, 2X/DAY (BID)
     Route: 048
     Dates: start: 20160301, end: 20160427

REACTIONS (7)
  - Off label use [Unknown]
  - Status epilepticus [Recovered/Resolved]
  - Injury [Unknown]
  - Fall [Recovering/Resolving]
  - Generalised tonic-clonic seizure [Recovered/Resolved]
  - Seizure [Not Recovered/Not Resolved]
  - Overdose [Unknown]

NARRATIVE: CASE EVENT DATE: 20160329
